FAERS Safety Report 8543115-9 (Version None)
Quarter: 2012Q3

REPORT INFORMATION
  Report Type: 
  Country: None (occurrence: None)
  Receive Date: 20120727
  Receipt Date: 20111215
  Transmission Date: 20120928
  Serious: No
  Sender: FDA-Public Use
  Company Number: US-MYLANLABS-2011S1025809

PATIENT
  Sex: Female

DRUGS (5)
  1. LEVOTHYROXINE SODIUM [Suspect]
     Route: 048
     Dates: start: 20110101
  2. MUCOMYST [Concomitant]
  3. LEVOTHYROXINE SODIUM [Suspect]
     Indication: GOITRE
     Route: 048
     Dates: start: 20110101, end: 20110101
  4. ALBUTEROL [Concomitant]
  5. CALCIUM [Concomitant]

REACTIONS (2)
  - ALOPECIA [None]
  - POSTMENOPAUSAL HAEMORRHAGE [None]
